FAERS Safety Report 5836873-5 (Version None)
Quarter: 2008Q3

REPORT INFORMATION
  Report Type: 
  Country: None (occurrence: None)
  Receive Date: 20080806
  Receipt Date: 20080806
  Transmission Date: 20090109
  Serious: Yes (Other)
  Sender: FDA-Public Use
  Company Number: None

PATIENT
  Sex: Male
  Weight: 85.2762 kg

DRUGS (2)
  1. KADIAN [Suspect]
     Indication: INVESTIGATION
     Dosage: 100MG ONCE PO
     Route: 048
  2. NALTREXONE HYDROCHLORIDE [Suspect]
     Indication: INVESTIGATION
     Dosage: 50MG Q12H PO (GIVEN X2)
     Route: 048

REACTIONS (7)
  - ANGIOEDEMA [None]
  - ASTHENIA [None]
  - DYSPHAGIA [None]
  - DYSPNOEA [None]
  - HYPERSENSITIVITY [None]
  - NAUSEA [None]
  - PALATAL OEDEMA [None]
